FAERS Safety Report 10098836 (Version 1)
Quarter: 2014Q2

REPORT INFORMATION
  Report Type: Report from Study
  Country: US (occurrence: US)
  Receive Date: 20140423
  Receipt Date: 20140423
  Transmission Date: 20141212
  Serious: Yes (Death)
  Sender: FDA-Public Use
  Company Number: US-SA-2014SA052577

PATIENT
  Sex: 0

DRUGS (4)
  1. CAPECITABINE [Suspect]
     Indication: CHOLANGIOCARCINOMA
     Dosage: DAY 1-14 OF 21 DAY CYCLE
     Route: 048
  2. OXALIPLATIN [Suspect]
     Indication: CHOLANGIOCARCINOMA
     Dosage: ON DAY 1 OF 21 DAY CYCLE
     Route: 042
  3. BEVACIZUMAB [Suspect]
     Indication: CHOLANGIOCARCINOMA
     Route: 042
  4. EVEROLIMUS [Suspect]
     Indication: CHOLANGIOCARCINOMA
     Route: 048

REACTIONS (1)
  - Gastrointestinal haemorrhage [Fatal]
